FAERS Safety Report 4501822-9 (Version None)
Quarter: 2004Q4

REPORT INFORMATION
  Report Type: 
  Country: None (occurrence: None)
  Receive Date: 20041115
  Receipt Date: 20041115
  Transmission Date: 20050328
  Serious: Yes (Life-Threatening, Hospitalization)
  Sender: FDA-Public Use
  Company Number: None

PATIENT
  Age: 49 Year
  Sex: Female
  Weight: 79.4 kg

DRUGS (6)
  1. LITHIUM [Suspect]
  2. QUETIAPINE [Concomitant]
  3. TRAMADOL [Concomitant]
  4. ESTRATEST [Concomitant]
  5. CLIDINIUM/CHLORDIAZEPOXIDE [Concomitant]
  6. PANCRELIPASE [Concomitant]

REACTIONS (7)
  - AGITATION [None]
  - BALANCE DISORDER [None]
  - CONFUSIONAL STATE [None]
  - DIARRHOEA [None]
  - NAUSEA [None]
  - TREMOR [None]
  - VOMITING [None]
